FAERS Safety Report 17414626 (Version 2)
Quarter: 2025Q3

REPORT INFORMATION
  Report Type: Spontaneous
  Country: EU (occurrence: EU)
  Receive Date: 20200213
  Receipt Date: 20250711
  Transmission Date: 20251021
  Serious: Yes (Hospitalization)
  Sender: MYLAN
  Company Number: None

PATIENT
  Age: 28 Year
  Sex: Female

DRUGS (12)
  1. SERTRALINE [Suspect]
     Active Substance: SERTRALINE HYDROCHLORIDE
     Indication: Product used for unknown indication
     Dates: start: 20190714, end: 20190714
  2. SERTRALINE [Suspect]
     Active Substance: SERTRALINE HYDROCHLORIDE
     Route: 048
     Dates: start: 20190714, end: 20190714
  3. SERTRALINE [Suspect]
     Active Substance: SERTRALINE HYDROCHLORIDE
     Route: 048
     Dates: start: 20190714, end: 20190714
  4. SERTRALINE [Suspect]
     Active Substance: SERTRALINE HYDROCHLORIDE
     Dates: start: 20190714, end: 20190714
  5. PROPIOMAZINE [Suspect]
     Active Substance: PROPIOMAZINE
     Indication: Product used for unknown indication
     Dates: start: 20190714, end: 20190714
  6. PROPIOMAZINE [Suspect]
     Active Substance: PROPIOMAZINE
     Route: 048
     Dates: start: 20190714, end: 20190714
  7. PROPIOMAZINE [Suspect]
     Active Substance: PROPIOMAZINE
     Route: 048
     Dates: start: 20190714, end: 20190714
  8. PROPIOMAZINE [Suspect]
     Active Substance: PROPIOMAZINE
     Dates: start: 20190714, end: 20190714
  9. MIRTAZAPINE [Suspect]
     Active Substance: MIRTAZAPINE
     Indication: Product used for unknown indication
     Dates: start: 20190714, end: 20190714
  10. MIRTAZAPINE [Suspect]
     Active Substance: MIRTAZAPINE
     Route: 048
     Dates: start: 20190714, end: 20190714
  11. MIRTAZAPINE [Suspect]
     Active Substance: MIRTAZAPINE
     Route: 048
     Dates: start: 20190714, end: 20190714
  12. MIRTAZAPINE [Suspect]
     Active Substance: MIRTAZAPINE
     Dates: start: 20190714, end: 20190714

REACTIONS (4)
  - Formication [Unknown]
  - Suicide attempt [Unknown]
  - Fatigue [Unknown]
  - Intentional overdose [Unknown]

NARRATIVE: CASE EVENT DATE: 20190714
